FAERS Safety Report 11826973 (Version 1)
Quarter: 2015Q4

REPORT INFORMATION
  Report Type: Spontaneous
  Country: US (occurrence: US)
  Receive Date: 20151211
  Receipt Date: 20151211
  Transmission Date: 20160305
  Serious: No
  Sender: FDA-Public Use
  Company Number: US-WATSON-2015-25371

PATIENT
  Age: 25 Year
  Sex: Female
  Weight: 77.3 kg

DRUGS (4)
  1. VITAMIN D3 [Concomitant]
     Active Substance: CHOLECALCIFEROL
     Indication: VITAMIN SUPPLEMENTATION
     Dosage: UNK, UNKNOWN
     Route: 065
  2. LATUDA [Suspect]
     Active Substance: LURASIDONE HYDROCHLORIDE
     Indication: SCHIZOPHRENIA
     Dosage: 40 MG, DAILY
     Route: 048
     Dates: start: 2014
  3. LATUDA [Suspect]
     Active Substance: LURASIDONE HYDROCHLORIDE
     Dosage: UNK
  4. TRIHEXYPHENIDYL HYDROCHLORIDE (WATSON LABORATORIES) [Suspect]
     Active Substance: TRIHEXYPHENIDYL HYDROCHLORIDE
     Indication: PRODUCT USED FOR UNKNOWN INDICATION
     Dosage: UNK, UNKNOWN
     Route: 065

REACTIONS (7)
  - Abdominal distension [Unknown]
  - Alopecia [Unknown]
  - Blood prolactin increased [Unknown]
  - Vitamin D decreased [Unknown]
  - Amenorrhoea [Unknown]
  - Eye disorder [Unknown]
  - Weight increased [Unknown]
